FAERS Safety Report 5638261-3 (Version None)
Quarter: 2008Q1

REPORT INFORMATION
  Report Type: 
  Country: None (occurrence: None)
  Receive Date: 20080221
  Receipt Date: 20080215
  Transmission Date: 20080703
  Serious: Yes (Death, Life-Threatening)
  Sender: FDA-Public Use
  Company Number: 2008US000530

PATIENT
  Age: 75 Year
  Sex: Female

DRUGS (2)
  1. MYCAMINE [Suspect]
     Indication: BRONCHOPULMONARY ASPERGILLOSIS
     Dosage: 150 MG, UID/QD, IV NOS
     Route: 042
     Dates: start: 20071030, end: 20071103
  2. VORICONAZOLE (VORICONAZOLE) [Concomitant]

REACTIONS (13)
  - ATRIAL FIBRILLATION [None]
  - CHRONIC RESPIRATORY FAILURE [None]
  - GASTROINTESTINAL DISORDER [None]
  - HYPOTENSION [None]
  - MULTI-ORGAN FAILURE [None]
  - MUSCULAR WEAKNESS [None]
  - MYELOPATHY [None]
  - NOSOCOMIAL INFECTION [None]
  - PLATELET COUNT DECREASED [None]
  - POLYNEUROPATHY [None]
  - RENAL FAILURE ACUTE [None]
  - SEPSIS SYNDROME [None]
  - THERAPEUTIC RESPONSE DECREASED [None]
